FAERS Safety Report 6667106-8 (Version None)
Quarter: 2010Q2

REPORT INFORMATION
  Report Type: 
  Country: None (occurrence: None)
  Receive Date: 20100405
  Receipt Date: 20100324
  Transmission Date: 20101027
  Serious: Yes (Other)
  Sender: FDA-Public Use
  Company Number: JP-PFIZER INC-2010035733

PATIENT
  Age: 17 Year
  Sex: Male

DRUGS (4)
  1. SILDENAFIL CITRATE [Suspect]
     Indication: PULMONARY HYPERTENSION
     Dosage: FREQUENCY: 2X/DAY,
     Route: 048
     Dates: start: 20031218
  2. BERAPROST SODIUM [Concomitant]
     Dosage: 40 UG, 3X/DAY
     Route: 048
  3. TORASEMIDE [Concomitant]
  4. OLPRINONE HYDROCHLORIDE [Concomitant]

REACTIONS (1)
  - BLOOD CREATINE PHOSPHOKINASE INCREASED [None]
